FAERS Safety Report 22743576 (Version 3)
Quarter: 2024Q4

REPORT INFORMATION
  Report Type: Report from Study
  Country: US (occurrence: US)
  Receive Date: 20230724
  Receipt Date: 20241022
  Transmission Date: 20250114
  Serious: Yes (Hospitalization, Other)
  Sender: NOVARTIS
  Company Number: US-002147023-NVSC2023US162054

PATIENT
  Age: 62 Year
  Sex: Male

DRUGS (2)
  1. ENTRESTO [Suspect]
     Active Substance: SACUBITRIL\VALSARTAN
     Indication: Hypertension
     Dosage: 100 MG, BID
     Route: 048
     Dates: start: 2023
  2. ENTRESTO [Suspect]
     Active Substance: SACUBITRIL\VALSARTAN
     Indication: Cardiac failure congestive
     Dosage: 51/49 MG, BID
     Route: 048
     Dates: start: 202304

REACTIONS (5)
  - Cardiac failure congestive [Unknown]
  - Chronic obstructive pulmonary disease [Unknown]
  - Cough [Not Recovered/Not Resolved]
  - Hypertension [Unknown]
  - Peripheral swelling [Unknown]

NARRATIVE: CASE EVENT DATE: 20230720
